FAERS Safety Report 23208354 (Version 1)
Quarter: 2023Q4

REPORT INFORMATION
  Report Type: Spontaneous
  Country: US (occurrence: US)
  Receive Date: 20231121
  Receipt Date: 20231121
  Transmission Date: 20240110
  Serious: No
  Sender: FDA-Public Use
  Company Number: US-SA-2023SA356083

PATIENT
  Age: 8 Year
  Sex: Male

DRUGS (1)
  1. CEREZYME [Suspect]
     Active Substance: IMIGLUCERASE
     Indication: Gaucher^s disease
     Dosage: 2000 U, QOW
     Route: 042
     Dates: start: 201808

REACTIONS (4)
  - Gaucher^s disease [Unknown]
  - Condition aggravated [Unknown]
  - Hepatomegaly [Unknown]
  - Splenomegaly [Unknown]

NARRATIVE: CASE EVENT DATE: 20230101
